FAERS Safety Report 8963374 (Version 1)
Quarter: 2012Q4

REPORT INFORMATION
  Report Type: 
  Country: US (occurrence: US)
  Receive Date: 20121213
  Receipt Date: 20121213
  Transmission Date: 20130627
  Serious: Yes (Other)
  Sender: FDA-Public Use
  Company Number: US-PFIZER INC-2012315859

PATIENT
  Age: 49 Year
  Sex: Female
  Weight: 79.37 kg

DRUGS (2)
  1. EFFEXOR XR [Suspect]
     Indication: HOT FLASHES
     Dosage: 75 mg, 1x/day
     Route: 048
     Dates: start: 200308
  2. PROTONIX [Concomitant]

REACTIONS (1)
  - Breast cancer [Unknown]
